FAERS Safety Report 13036211 (Version 1)
Quarter: 2016Q4

REPORT INFORMATION
  Report Type: Spontaneous
  Country: US (occurrence: US)
  Receive Date: 20161216
  Receipt Date: 20161216
  Transmission Date: 20170207
  Serious: No
  Sender: FDA-Public Use
  Company Number: GXBR2016US002944

PATIENT
  Sex: Female

DRUGS (1)
  1. IBUPROFEN TABLETS USP [Suspect]
     Active Substance: IBUPROFEN
     Indication: BURSITIS
     Dosage: 600 MG, UNK
     Route: 048

REACTIONS (1)
  - Drug interaction [Unknown]
